FAERS Safety Report 9981787 (Version 1)
Quarter: 2014Q1

REPORT INFORMATION
  Report Type: Spontaneous
  Country: US (occurrence: None)
  Receive Date: 20140306
  Receipt Date: 20140306
  Transmission Date: 20141002
  Serious: Yes (Other)
  Sender: FDA-Public Use
  Company Number: None

PATIENT
  Age: 57 Year
  Sex: Male
  Weight: 80.5 kg

DRUGS (12)
  1. ZYVOX 600 MG [Suspect]
     Indication: SEPSIS
     Route: 042
     Dates: start: 20140303
  2. ZYVOX 600 MG [Suspect]
     Indication: LOCALISED INFECTION
     Route: 042
     Dates: start: 20140303
  3. NIACIN 50 MG [Suspect]
     Indication: HYPERLIPIDAEMIA
     Dosage: 5 PILLS QD ORAL
     Dates: start: 20140304
  4. ACETAMINOPHEN [Concomitant]
  5. ACETAMINOPHEN-CODEINE [Concomitant]
  6. ASPIRIN [Concomitant]
  7. CALCIUM-VITAMIN D [Concomitant]
  8. LOPERIMIDE [Concomitant]
  9. MERREM [Concomitant]
  10. MYADEC GENERIC MULTIVITAMIN [Concomitant]
  11. PROTONIX [Concomitant]
  12. VITAMIN D [Concomitant]

REACTIONS (4)
  - Feeling abnormal [None]
  - Feeling hot [None]
  - Erythema [None]
  - Infusion related reaction [None]
